FAERS Safety Report 8988945 (Version 1)
Quarter: 2012Q4

REPORT INFORMATION
  Report Type: Spontaneous
  Country: US (occurrence: None)
  Receive Date: 20121224
  Receipt Date: 20121224
  Transmission Date: 20130627
  Serious: Yes (Other)
  Sender: FDA-Public Use
  Company Number: None

PATIENT
  Sex: Female
  Weight: 71.67 kg

DRUGS (1)
  1. TARCEVA [Suspect]
     Indication: LUNG CANCER
     Route: 048
     Dates: start: 201112, end: 20121206

REACTIONS (5)
  - Rash [None]
  - Localised infection [None]
  - Urinary tract infection [None]
  - Localised infection [None]
  - Skin ulcer [None]
